FAERS Safety Report 5956200-2 (Version None)
Quarter: 2008Q4

REPORT INFORMATION
  Report Type: 
  Country: None (occurrence: None)
  Receive Date: 20081112
  Receipt Date: 20081029
  Transmission Date: 20090506
  Serious: Yes (Other)
  Sender: FDA-Public Use
  Company Number: IMP_03937_2008

PATIENT
  Sex: Female

DRUGS (1)
  1. BUDEPRION 300 MG (NOT SPECIFIED) [Suspect]
     Indication: DEPRESSION
     Dosage: DF
     Dates: start: 20070401

REACTIONS (8)
  - AMNESIA [None]
  - DEPRESSION [None]
  - DRUG INEFFECTIVE [None]
  - FEELING OF DESPAIR [None]
  - IRRITABILITY [None]
  - PARANOIA [None]
  - THERAPEUTIC RESPONSE UNEXPECTED WITH DRUG SUBSTITUTION [None]
  - WEIGHT INCREASED [None]
